FAERS Safety Report 21932310 (Version 1)
Quarter: 2023Q1

REPORT INFORMATION
  Report Type: Spontaneous
  Country: PH (occurrence: None)
  Receive Date: 20230131
  Receipt Date: 20230131
  Transmission Date: 20230417
  Serious: Yes (unspecified)
  Sender: FDA-Public Use
  Company Number: None

PATIENT
  Age: 20 Year
  Sex: Female
  Weight: 52 kg

DRUGS (4)
  1. MONTELUKAST SODIUM [Suspect]
     Active Substance: MONTELUKAST SODIUM
     Indication: Cough
     Dosage: OTHER QUANTITY : 1 TABLET(S);?FREQUENCY : DAILY;?
     Route: 048
     Dates: start: 20230123, end: 20230131
  2. ALBUTEROL [Concomitant]
     Active Substance: ALBUTEROL
  3. honey with citrus [Concomitant]
  4. warm water with small amount of salt [Concomitant]

REACTIONS (3)
  - Pruritus [None]
  - Oropharyngeal pain [None]
  - Auditory disorder [None]

NARRATIVE: CASE EVENT DATE: 20230123
